FAERS Safety Report 17205292 (Version 1)
Quarter: 2019Q4

REPORT INFORMATION
  Report Type: Report from Study
  Country: FR (occurrence: FR)
  Receive Date: 20191227
  Receipt Date: 20191227
  Transmission Date: 20200122
  Serious: Yes (Other)
  Sender: FDA-Public Use
  Company Number: FR-ROCHE-2504676

PATIENT

DRUGS (3)
  1. PEMETREXED. [Suspect]
     Active Substance: PEMETREXED
     Indication: NON-SMALL CELL LUNG CANCER
     Route: 065
  2. BEVACIZUMAB. [Suspect]
     Active Substance: BEVACIZUMAB
     Indication: NON-SMALL CELL LUNG CANCER
     Route: 065
  3. CISPLATIN. [Suspect]
     Active Substance: CISPLATIN
     Indication: NON-SMALL CELL LUNG CANCER
     Route: 065

REACTIONS (17)
  - Pulmonary embolism [Unknown]
  - Anaemia [Unknown]
  - Haemoptysis [Unknown]
  - Sepsis [Unknown]
  - Thrombocytopenia [Unknown]
  - Rectal haemorrhage [Unknown]
  - Gingival bleeding [Unknown]
  - Neutropenia [Unknown]
  - Decreased appetite [Unknown]
  - Proteinuria [Unknown]
  - Stomatitis [Unknown]
  - Febrile neutropenia [Unknown]
  - Hypertension [Unknown]
  - Nausea [Unknown]
  - Haemorrhoids [Unknown]
  - Asthenia [Unknown]
  - Vomiting [Unknown]
